FAERS Safety Report 6727190-X (Version None)
Quarter: 2010Q2

REPORT INFORMATION
  Report Type: 
  Country: None (occurrence: None)
  Receive Date: 20100517
  Receipt Date: 20100506
  Transmission Date: 20101027
  Serious: Yes (Hospitalization)
  Sender: FDA-Public Use
  Company Number: US-JNJFOC-20091205710

PATIENT
  Sex: Male
  Weight: 59.4 kg

DRUGS (3)
  1. INFLIXIMAB [Suspect]
     Indication: INFLAMMATORY BOWEL DISEASE
     Route: 042
  2. MERCAPTOPURINE [Concomitant]
  3. GLYCOLAX [Concomitant]

REACTIONS (1)
  - PERIRECTAL ABSCESS [None]
